FAERS Safety Report 20040354 (Version 1)
Quarter: 2021Q4

REPORT INFORMATION
  Report Type: Spontaneous
  Country: US (occurrence: None)
  Receive Date: 20211104
  Receipt Date: 20211104
  Transmission Date: 20220303
  Serious: Yes (Other)
  Sender: FDA-Public Use
  Company Number: None

PATIENT
  Age: 69 Year
  Sex: Female
  Weight: 83.91 kg

DRUGS (5)
  1. HYDROCHLOROTHIAZIDE\LISINOPRIL [Suspect]
     Active Substance: HYDROCHLOROTHIAZIDE\LISINOPRIL
     Indication: Hypertension
     Dosage: OTHER QUANTITY : 1 DF DOSAGE FORM;?FREQUENCY : DAILY;?
     Route: 048
     Dates: start: 20210509, end: 20210714
  2. HYDROCHLOROTHIAZIDE [Suspect]
     Active Substance: HYDROCHLOROTHIAZIDE
     Dosage: OTHER QUANTITY : 1 DF DOSAGE FORM;?FREQUENCY : DAILY;?
     Route: 048
  3. LISINOPRIL [Suspect]
     Active Substance: LISINOPRIL
     Dosage: OTHER QUANTITY : 1 DF DOSAGE FORM;?FREQUENCY : DAILY;?
     Route: 048
  4. Womens Multi vitamin [Concomitant]
  5. 325 Aspirin [Concomitant]

REACTIONS (12)
  - Fall [None]
  - Muscle spasms [None]
  - Feeling abnormal [None]
  - Alopecia [None]
  - Loss of control of legs [None]
  - Muscle spasms [None]
  - Muscle spasms [None]
  - Depression [None]
  - Cough [None]
  - Gait disturbance [None]
  - Dizziness [None]
  - Wheelchair user [None]

NARRATIVE: CASE EVENT DATE: 20210606
